FAERS Safety Report 5670507-8 (Version None)
Quarter: 2008Q1

REPORT INFORMATION
  Report Type: 
  Country: None (occurrence: None)
  Receive Date: 20080318
  Receipt Date: 20080311
  Transmission Date: 20080703
  Serious: Yes (Other)
  Sender: FDA-Public Use
  Company Number: PHMT2008CA00582

PATIENT
  Age: 63 Year
  Sex: Male

DRUGS (5)
  1. EFFEXOR [Concomitant]
     Route: 065
  2. UNIPHYL [Concomitant]
     Dosage: 600 MG, QHS
     Route: 065
  3. TEGRETOL [Suspect]
     Indication: TRIGEMINAL NEURALGIA
  4. LYRICA [Concomitant]
     Indication: PAIN
     Route: 065
  5. BACLOFEN [Concomitant]
     Indication: PAIN
     Route: 065

REACTIONS (6)
  - DIARRHOEA [None]
  - MALAISE [None]
  - NAUSEA [None]
  - PAIN [None]
  - PARAESTHESIA [None]
  - PERIPHERAL NERVE OPERATION [None]
